FAERS Safety Report 12735545 (Version 1)
Quarter: 2016Q3

REPORT INFORMATION
  Report Type: Other
  Country: ES (occurrence: ES)
  Receive Date: 20160912
  Receipt Date: 20160912
  Transmission Date: 20161109
  Serious: Yes (Hospitalization, Other)
  Sender: FDA-Public Use
  Company Number: ES-ASTELLAS-2016US034433

PATIENT
  Age: 72 Year
  Sex: Male

DRUGS (4)
  1. VALCYTE [Concomitant]
     Active Substance: VALGANCICLOVIR HYDROCHLORIDE
     Indication: INFECTION PROPHYLAXIS
     Route: 048
     Dates: start: 201403, end: 20140501
  2. ADVAGRAF [Suspect]
     Active Substance: TACROLIMUS
     Indication: RENAL TRANSPLANT
     Route: 048
     Dates: start: 201403, end: 20140501
  3. ADVAGRAF [Interacting]
     Active Substance: TACROLIMUS
     Dosage: UNK, UNKNOWN FREQ.
     Route: 065
  4. PREDNISONE. [Interacting]
     Active Substance: PREDNISONE
     Indication: RENAL TRANSPLANT
     Route: 048
     Dates: start: 201403, end: 20140501

REACTIONS (4)
  - Oesophageal candidiasis [Recovered/Resolved]
  - Nervous system disorder [Unknown]
  - Drug interaction [Unknown]
  - Haematochezia [Unknown]

NARRATIVE: CASE EVENT DATE: 20140501
